FAERS Safety Report 15757817 (Version 1)
Quarter: 2018Q4

REPORT INFORMATION
  Report Type: Other
  Country: DE (occurrence: DE)
  Receive Date: 20181225
  Receipt Date: 20181225
  Transmission Date: 20190205
  Serious: Yes (Hospitalization, Other)
  Sender: FDA-Public Use
  Company Number: DE-CELLTRION INC.-2018DE024740

PATIENT

DRUGS (10)
  1. ZYDELIG [Suspect]
     Active Substance: IDELALISIB
     Dosage: 200 MG
     Route: 065
     Dates: start: 20170417
  2. PANTOPRAZOL                        /01263201/ [Concomitant]
     Active Substance: PANTOPRAZOLE
     Dosage: 40 MG, QD
  3. RITUXIMAB (UNKNOWN) [Suspect]
     Active Substance: RITUXIMAB
     Indication: GENE MUTATION
     Dosage: 775 MG, 5 INFUSIONS
     Dates: start: 201711, end: 201711
  4. RITUXIMAB (UNKNOWN) [Suspect]
     Active Substance: RITUXIMAB
     Dosage: 775 MG, 5 INFUSIONS
     Dates: start: 201711
  5. RITUXIMAB (UNKNOWN) [Suspect]
     Active Substance: RITUXIMAB
     Dosage: 775 MG, 5 INFUSIONS
     Dates: start: 201711
  6. RITUXIMAB (UNKNOWN) [Suspect]
     Active Substance: RITUXIMAB
     Dosage: 775 MG, 5 INFUSIONS
     Dates: start: 201711
  7. OPIPRAMOL [Concomitant]
     Active Substance: OPIPRAMOL
     Dosage: 50 MG, 1 DAY
  8. RITUXIMAB (UNKNOWN) [Suspect]
     Active Substance: RITUXIMAB
     Indication: CHRONIC LYMPHOCYTIC LEUKAEMIA
     Dosage: 775 MG, 5 INFUSIONS
     Dates: start: 201702, end: 201702
  9. ZYDELIG [Suspect]
     Active Substance: IDELALISIB
     Indication: GENE MUTATION
     Dosage: UNK
     Route: 065
     Dates: start: 20170320, end: 20170410
  10. ZYDELIG [Suspect]
     Active Substance: IDELALISIB
     Dosage: UNK
     Route: 048
     Dates: start: 20170201, end: 201712

REACTIONS (12)
  - Gastroenteritis norovirus [Unknown]
  - Incorrect dose administered [None]
  - Pneumonia influenzal [Unknown]
  - Hypokalaemia [Unknown]
  - Off label use [Unknown]
  - Hypochromic anaemia [Unknown]
  - Viral infection [Unknown]
  - Diarrhoea [Unknown]
  - Rectal haemorrhage [Unknown]
  - Oedema peripheral [Unknown]
  - Pleural effusion [Unknown]
  - Gastroenteritis norovirus [Unknown]

NARRATIVE: CASE EVENT DATE: 20170410
